FAERS Safety Report 4426733-9 (Version None)
Quarter: 2004Q3

REPORT INFORMATION
  Report Type: 
  Country: None (occurrence: None)
  Receive Date: 20040811
  Receipt Date: 20040809
  Transmission Date: 20050211
  Serious: Yes (Other)
  Sender: FDA-Public Use
  Company Number: HQWYE881306JUL04

PATIENT
  Age: 55 Year
  Sex: Female
  Weight: 63.56 kg

DRUGS (7)
  1. PREMARIN [Suspect]
     Indication: HORMONE REPLACEMENT THERAPY
     Dosage: ORAL
     Route: 048
     Dates: start: 19890101, end: 19990101
  2. NORVASC [Concomitant]
  3. ISODRIL (CHORHEXIDINE GLUCONATE/PHENYLEPHRINE HYDROCHLORIDE) [Concomitant]
  4. LASIX [Concomitant]
  5. MICRO-K EXTENCAPS (POTASSIUM CHLORIDE) [Concomitant]
  6. PROVERA [Concomitant]
  7. VITAMINS (VITAMINS) [Concomitant]

REACTIONS (4)
  - CORONARY ARTERY OCCLUSION [None]
  - LUNG DISORDER [None]
  - PRODUCTIVE COUGH [None]
  - VOCAL CORD PARALYSIS [None]
